FAERS Safety Report 6891723-3 (Version None)
Quarter: 2010Q3

REPORT INFORMATION
  Report Type: 
  Country: None (occurrence: None)
  Receive Date: 20100731
  Receipt Date: 20071012
  Transmission Date: 20110219
  Serious: Yes (Hospitalization)
  Sender: FDA-Public Use
  Company Number: US-PFIZER INC-2007072123

PATIENT
  Sex: Female
  Weight: 52.6 kg

DRUGS (2)
  1. CAMPTOSAR [Suspect]
     Indication: COLORECTAL CANCER METASTATIC
     Dates: end: 20070901
  2. CETUXIMAB [Suspect]

REACTIONS (4)
  - BLOOD MAGNESIUM DECREASED [None]
  - COLORECTAL CANCER METASTATIC [None]
  - DIARRHOEA [None]
  - DISEASE PROGRESSION [None]
